FAERS Safety Report 4348245-3 (Version None)
Quarter: 2004Q2

REPORT INFORMATION
  Report Type: 
  Country: None (occurrence: None)
  Receive Date: 20040422
  Receipt Date: 20040408
  Transmission Date: 20050107
  Serious: Yes (Death)
  Sender: FDA-Public Use
  Company Number: B0322271A

PATIENT
  Age: 30 Year
  Sex: Male

DRUGS (5)
  1. MORPHINE SULFATE [Suspect]
     Indication: BACK PAIN
     Dosage: INTRAVENOUS
     Route: 042
  2. OLANZAPINE [Concomitant]
  3. VALPROATE SODIUM [Concomitant]
  4. DIAZEPAM [Concomitant]
  5. PARACETAMOL [Concomitant]

REACTIONS (18)
  - ABDOMINAL PAIN UPPER [None]
  - ANOREXIA [None]
  - DILATATION VENTRICULAR [None]
  - DRUG ABUSER [None]
  - DRUG TOXICITY [None]
  - DYSPNOEA [None]
  - HAEMOPTYSIS [None]
  - INSOMNIA [None]
  - INTENTIONAL MISUSE [None]
  - INTERSTITIAL LUNG DISEASE [None]
  - LIVER DISORDER [None]
  - MEDICATION ERROR [None]
  - OVERDOSE [None]
  - PULMONARY GRANULOMA [None]
  - SILICON GRANULOMA [None]
  - SPLEEN DISORDER [None]
  - TREATMENT NONCOMPLIANCE [None]
  - VENTRICULAR HYPERTROPHY [None]
